FAERS Safety Report 23826482 (Version 1)
Quarter: 2024Q2

REPORT INFORMATION
  Report Type: Spontaneous
  Country: US (occurrence: None)
  Receive Date: 20240506
  Receipt Date: 20240506
  Transmission Date: 20240715
  Serious: Yes (Other)
  Sender: FDA-Public Use
  Company Number: None

PATIENT
  Age: 36 Year
  Sex: Female

DRUGS (1)
  1. CYANOCOBALAMIN\GLYCINE\SEMAGLUTIDE [Suspect]
     Active Substance: CYANOCOBALAMIN\GLYCINE\SEMAGLUTIDE
     Dosage: FREQUENCY : WEEKLY;?
     Route: 058

REACTIONS (4)
  - Vomiting [None]
  - Nausea [None]
  - Incorrect dose administered [None]
  - Accidental overdose [None]

NARRATIVE: CASE EVENT DATE: 20240502
